FAERS Safety Report 15278884 (Version 15)
Quarter: 2019Q1

REPORT INFORMATION
  Report Type: Report from Study
  Country: US (occurrence: US)
  Receive Date: 20180815
  Receipt Date: 20190322
  Transmission Date: 20190417
  Serious: Yes (Other)
  Sender: FDA-Public Use
  Company Number: US-TEVA-2018-US-943556

PATIENT
  Sex: Male

DRUGS (4)
  1. CLOZAPINE TEVA [Suspect]
     Active Substance: CLOZAPINE
     Route: 048
  2. CLOZAPINE TEVA [Suspect]
     Active Substance: CLOZAPINE
     Route: 048
  3. CLOZAPINE TEVA [Suspect]
     Active Substance: CLOZAPINE
     Route: 048
  4. CLOZAPINE TEVA [Suspect]
     Active Substance: CLOZAPINE
     Route: 048

REACTIONS (1)
  - Granulocytopenia [Unknown]
